FAERS Safety Report 5642058-8 (Version None)
Quarter: 2008Q1

REPORT INFORMATION
  Report Type: 
  Country: None (occurrence: None)
  Receive Date: 20080227
  Receipt Date: 20080215
  Transmission Date: 20080703
  Serious: Yes (Hospitalization)
  Sender: FDA-Public Use
  Company Number: FR-PFIZER INC-2008015473

PATIENT
  Age: 64 Year
  Sex: Male
  Weight: 90 kg

DRUGS (8)
  1. TRIFLUCAN [Interacting]
     Dosage: DAILY DOSE:400MG
     Route: 048
     Dates: start: 20070706, end: 20070725
  2. SANDIMMUNE [Interacting]
     Indication: SKIN GRAFT
     Route: 042
     Dates: start: 20070706, end: 20070715
  3. ACUPAN [Suspect]
     Route: 042
     Dates: start: 20070714, end: 20070714
  4. METOCLOPRAMIDE [Suspect]
     Route: 042
     Dates: start: 20070714, end: 20070714
  5. INIPOMP [Concomitant]
     Dosage: DAILY DOSE:5MG
     Route: 042
     Dates: start: 20070713, end: 20070809
  6. MYCOPHENOLATE MOFETIL [Concomitant]
  7. TACROLIMUS [Concomitant]
  8. ACYCLOVIR [Concomitant]

REACTIONS (2)
  - DRUG INTERACTION [None]
  - LEUKOENCEPHALOPATHY [None]
